FAERS Safety Report 9396036 (Version 1)
Quarter: 2013Q3

REPORT INFORMATION
  Report Type: Spontaneous
  Country: US (occurrence: US)
  Receive Date: 20130711
  Receipt Date: 20130711
  Transmission Date: 20140515
  Serious: No
  Sender: FDA-Public Use
  Company Number: US-PFIZER INC-2013201491

PATIENT
  Age: 60 Year
  Sex: Female

DRUGS (4)
  1. CORTISONE [Suspect]
  2. LITHIUM CARBONATE [Suspect]
  3. REGLAN [Suspect]
  4. ZYPREXA [Suspect]

REACTIONS (1)
  - Drug hypersensitivity [Unknown]
